FAERS Safety Report 25063751 (Version 5)
Quarter: 2025Q4

REPORT INFORMATION
  Report Type: Spontaneous
  Country: JP (occurrence: JP)
  Receive Date: 20250311
  Receipt Date: 20251110
  Transmission Date: 20260117
  Serious: Yes (Life-Threatening, Hospitalization)
  Sender: BAYER HEALTHCARE PHARMACEUTICALS INC.
  Company Number: JP-BAYER-2025A028099

PATIENT
  Age: 40 Year
  Sex: Female

DRUGS (1)
  1. MIRENA [Suspect]
     Active Substance: LEVONORGESTREL
     Indication: Heavy menstrual bleeding
     Dosage: 20?G/DAY
     Route: 015
     Dates: start: 20211111, end: 20250127

REACTIONS (10)
  - Septic shock [Recovered/Resolved]
  - Blood pressure systolic decreased [Recovered/Resolved]
  - Severe invasive streptococcal infection [Recovering/Resolving]
  - Toxic shock syndrome streptococcal [Recovering/Resolving]
  - Disseminated intravascular coagulation [None]
  - Pelvic inflammatory disease [Recovering/Resolving]
  - Unexpected vaginal bleeding on hormonal IUD [None]
  - Pyrexia [None]
  - Abdominal pain [None]
  - Adnexa uteri pain [None]

NARRATIVE: CASE EVENT DATE: 20250101
